FAERS Safety Report 6437839-7 (Version None)
Quarter: 2009Q4

REPORT INFORMATION
  Report Type: 
  Country: None (occurrence: None)
  Receive Date: 20091112
  Receipt Date: 20091111
  Transmission Date: 20100525
  Serious: Yes (Other)
  Sender: FDA-Public Use
  Company Number: US-PFIZER INC-2009270400

PATIENT
  Age: 33 Year
  Sex: Female
  Weight: 89.342 kg

DRUGS (2)
  1. CADUET [Suspect]
     Dosage: 10MG/10MG, UNK
     Dates: start: 20090914
  2. ALDOMET [Concomitant]
     Indication: HYPERTENSION
     Dosage: UNK

REACTIONS (1)
  - LABILE BLOOD PRESSURE [None]
